FAERS Safety Report 18599079 (Version 1)
Quarter: 2020Q4

REPORT INFORMATION
  Report Type: Report from Study
  Country: BR (occurrence: BR)
  Receive Date: 20201210
  Receipt Date: 20201210
  Transmission Date: 20210114
  Serious: Yes (Other)
  Sender: FDA-Public Use
  Company Number: BR-UCBSA-2020050077

PATIENT
  Age: 50 Year
  Sex: Female
  Weight: 107 kg

DRUGS (4)
  1. HIDROCLOROTIAZIDA [Concomitant]
     Active Substance: HYDROCHLOROTHIAZIDE
     Indication: HYPERTENSION
     Dosage: 25 MILLIGRAM, UNK
     Route: 048
     Dates: start: 1995
  2. CERTOLIZUMAB PEGOL [Suspect]
     Active Substance: CERTOLIZUMAB PEGOL
     Indication: RHEUMATOID ARTHRITIS
     Dosage: 1 APPLICATION , EV 15 DAYS
     Route: 058
     Dates: start: 202009
  3. LOSARTAN. [Concomitant]
     Active Substance: LOSARTAN
     Indication: HYPERTENSION
     Dosage: 50 MILLIGRAM, UNK
     Route: 048
     Dates: start: 1995
  4. HIDRION [Concomitant]
     Active Substance: FUROSEMIDE\POTASSIUM CHLORIDE
     Indication: HYPERTENSION
     Dosage: 40 MILLIGRAM, UNK
     Route: 048
     Dates: start: 1995

REACTIONS (1)
  - Hypersensitivity [Not Recovered/Not Resolved]

NARRATIVE: CASE EVENT DATE: 202009
